FAERS Safety Report 16815270 (Version 1)
Quarter: 2019Q3

REPORT INFORMATION
  Report Type: Spontaneous
  Country: US (occurrence: US)
  Receive Date: 20190725
  Receipt Date: 20190725
  Transmission Date: 20191005
  Serious: Yes (Hospitalization)
  Sender: FDA-Public Use
  Company Number: None

PATIENT
  Age: 52 Year
  Sex: Female

DRUGS (18)
  1. CALCIUM [Concomitant]
     Active Substance: CALCIUM
  2. CALTRATE [Concomitant]
     Active Substance: CALCIUM CARBONATE
  3. LISINOPRIL. [Concomitant]
     Active Substance: LISINOPRIL
  4. ADDERALL XR [Suspect]
     Active Substance: AMPHETAMINE ASPARTATE\AMPHETAMINE SULFATE\DEXTROAMPHETAMINE SACCHARATE\DEXTROAMPHETAMINE SULFATE
     Indication: MULTIPLE SCLEROSIS
  5. DITROPAN [Concomitant]
     Active Substance: OXYBUTYNIN CHLORIDE
  6. FISH OIL [Concomitant]
     Active Substance: FISH OIL
  7. REBIF [Concomitant]
     Active Substance: INTERFERON BETA-1A
  8. AMPYRA [Suspect]
     Active Substance: DALFAMPRIDINE
     Indication: MULTIPLE SCLEROSIS
     Route: 048
     Dates: start: 20181020
  9. GABAPENTIN. [Concomitant]
     Active Substance: GABAPENTIN
  10. NUEDEXTA [Concomitant]
     Active Substance: DEXTROMETHORPHAN HYDROBROMIDE\QUINIDINE SULFATE
  11. OMEPRAZOLE. [Concomitant]
     Active Substance: OMEPRAZOLE
  12. DULOXETINE. [Concomitant]
     Active Substance: DULOXETINE
  13. OXYBUTYNIN. [Concomitant]
     Active Substance: OXYBUTYNIN CHLORIDE
  14. APAP/CODEINE [Concomitant]
     Active Substance: ACETAMINOPHEN\CODEINE PHOSPHATE
  15. EXCEDRIN [Concomitant]
     Active Substance: ACETAMINOPHEN\ASPIRIN\CAFFEINE
  16. IBUPROFEN. [Concomitant]
     Active Substance: IBUPROFEN
  17. NORTRIPTYLIN [Concomitant]
     Active Substance: NORTRIPTYLINE
  18. PREVIDENT [Concomitant]
     Active Substance: SODIUM FLUORIDE

REACTIONS (1)
  - Catheter placement [None]
